FAERS Safety Report 24856291 (Version 2)
Quarter: 2025Q1

REPORT INFORMATION
  Report Type: Spontaneous
  Country: CA (occurrence: CA)
  Receive Date: 20250117
  Receipt Date: 20250117
  Transmission Date: 20250409
  Serious: Yes (Other)
  Sender: PFIZER
  Company Number: CA-PFIZER INC-202500010820

PATIENT
  Sex: Female

DRUGS (4)
  1. SOMATROPIN [Suspect]
     Active Substance: SOMATROPIN
  2. SOMATROPIN [Suspect]
     Active Substance: SOMATROPIN
     Route: 065
  3. SOMATROPIN [Suspect]
     Active Substance: SOMATROPIN
     Route: 065
  4. SOMATROPIN [Suspect]
     Active Substance: SOMATROPIN

REACTIONS (2)
  - Muscle disorder [Unknown]
  - Road traffic accident [Unknown]
